FAERS Safety Report 6480822-6 (Version None)
Quarter: 2009Q4

REPORT INFORMATION
  Report Type: 
  Country: None (occurrence: None)
  Receive Date: 20091123
  Receipt Date: 20090928
  Transmission Date: 20100525
  Serious: No
  Sender: FDA-Public Use
  Company Number: 8052639

PATIENT
  Age: 60 Year
  Sex: Male
  Weight: 102.2 kg

DRUGS (7)
  1. CIMZIA [Suspect]
     Indication: RHEUMATOID ARTHRITIS
     Dosage: 400 MG 1/2W SC
     Route: 058
     Dates: start: 20090801
  2. SULFAZINE [Concomitant]
  3. ALLOPURINOL [Concomitant]
  4. FOLIC ACID [Concomitant]
  5. PREDNISONE TAB [Concomitant]
  6. MULTIVITAMIN /00831701/ [Concomitant]
  7. VITAMIN D [Concomitant]

REACTIONS (1)
  - DRUG INEFFECTIVE [None]
